FAERS Safety Report 9246417 (Version 1)
Quarter: 2013Q2

REPORT INFORMATION
  Report Type: Spontaneous
  Country: US (occurrence: US)
  Receive Date: 20130422
  Receipt Date: 20130422
  Transmission Date: 20140414
  Serious: Yes (Other)
  Sender: FDA-Public Use
  Company Number: US-PFIZER INC-2013121477

PATIENT
  Age: 65 Year
  Sex: Female
  Weight: 66.21 kg

DRUGS (3)
  1. FIBERCON [Suspect]
     Indication: LAXATIVE SUPPORTIVE CARE
     Dosage: UNK (TWO CAPLETS ONCE A DAY), 1X/DAY
     Route: 048
  2. ZETIA [Concomitant]
     Dosage: UNK
  3. URSODIOL [Concomitant]
     Indication: LIVER DISORDER
     Dosage: UNK

REACTIONS (3)
  - Diabetes mellitus [Unknown]
  - Tablet physical issue [Unknown]
  - Poor quality drug administered [Unknown]
